FAERS Safety Report 9158382 (Version 1)
Quarter: 2013Q1

REPORT INFORMATION
  Report Type: Spontaneous
  Country: FR (occurrence: FR)
  Receive Date: 20130312
  Receipt Date: 20130312
  Transmission Date: 20140127
  Serious: Yes (Life-Threatening, Hospitalization)
  Sender: FDA-Public Use
  Company Number: FR-ASTRAZENECA-2013SE14202

PATIENT
  Age: 35 Year
  Sex: Male

DRUGS (10)
  1. XEROQUEL [Suspect]
     Indication: SCHIZOPHRENIA
     Route: 048
  2. XEROQUEL [Suspect]
     Indication: SLEEP DISORDER
     Route: 048
  3. XEROQUEL [Suspect]
     Indication: SCHIZOPHRENIA
     Route: 048
  4. XEROQUEL [Suspect]
     Indication: SLEEP DISORDER
     Route: 048
  5. XEROQUEL [Suspect]
     Indication: SCHIZOPHRENIA
     Dosage: UNSPECIFIED NUMBER OF XEROQUEL 50 MG
     Route: 048
  6. XEROQUEL [Suspect]
     Indication: SLEEP DISORDER
     Dosage: UNSPECIFIED NUMBER OF XEROQUEL 50 MG
     Route: 048
  7. TERALITHE [Suspect]
     Indication: BIPOLAR I DISORDER
     Route: 048
  8. TERALITHE [Suspect]
     Indication: BIPOLAR I DISORDER
     Route: 048
  9. TERALITHE [Suspect]
     Indication: BIPOLAR I DISORDER
     Route: 048
  10. UNSPECIFIED ANXIOLYTIC DRUG [Suspect]
     Route: 065

REACTIONS (4)
  - Overdose [Unknown]
  - Suicide attempt [Unknown]
  - Delirium [Unknown]
  - Off label use [Unknown]
